FAERS Safety Report 20614325 (Version 2)
Quarter: 2022Q1

REPORT INFORMATION
  Report Type: Spontaneous
  Country: US (occurrence: US)
  Receive Date: 20220320
  Receipt Date: 20220329
  Transmission Date: 20220423
  Serious: No
  Sender: FDA-Public Use
  Company Number: US-AMGEN-USASP2022042872

PATIENT
  Age: 77 Year
  Sex: Male
  Weight: 94.785 kg

DRUGS (23)
  1. REPATHA [Suspect]
     Active Substance: EVOLOCUMAB
     Indication: Cardiac disorder
     Dosage: 140 MILLIGRAM/ML, Q2WK
     Route: 058
     Dates: start: 2021
  2. ALLOPURINOL [Concomitant]
     Active Substance: ALLOPURINOL
     Dosage: 300 MILLIGRAM, QD
     Route: 048
     Dates: start: 20200915
  3. AMLODIPINE [Concomitant]
     Active Substance: AMLODIPINE BESYLATE
     Dosage: 10 MILLIGRAM, QD (0.5 TABLET)
     Route: 048
  4. AMOXICILLIN [Concomitant]
     Active Substance: AMOXICILLIN
     Dosage: 500 MILLIGRAM, TID
     Route: 048
  5. AMOXICILLIN\CLAVULANATE POTASSIUM [Concomitant]
     Active Substance: AMOXICILLIN\CLAVULANATE POTASSIUM
     Dosage: TWICE DAILY FOR 4 DAYS
  6. ATENOLOL [Concomitant]
     Active Substance: ATENOLOL
     Dosage: 100 MILLIGRAM, QD (TAJE 0.5 TABLET)
     Route: 048
  7. CEPHALEXIN [Concomitant]
     Active Substance: CEPHALEXIN
     Dosage: 500 MILLIGRAM, THREE TIMES DAY FOR 7 DAYS.
  8. CHOLECALCIFEROL [Concomitant]
     Active Substance: CHOLECALCIFEROL
     Dosage: 25 MICROGRAM (1,000 UNIT) TABLET
     Route: 048
  9. CYCLOBENZAPRINE [Concomitant]
     Active Substance: CYCLOBENZAPRINE
     Dosage: 10 MILLIGRAM, 3 TABELT DAILY FOR 7 DAYS
  10. FISH OIL [Concomitant]
     Active Substance: FISH OIL
     Dosage: 1000 MILLIGRAM (120 MG-180 MG)
     Route: 048
  11. FLUOROURACIL [Concomitant]
     Active Substance: FLUOROURACIL
     Dosage: 5 % TOPICAL CREAM
  12. FLUZONE HIGH DOSE QUADRIVALENT [Concomitant]
     Dosage: 2020-21 (PF) 240 MCG/0.7 ML IM SYRINGE
  13. GABAPENTIN [Concomitant]
     Active Substance: GABAPENTIN
     Dosage: 600 MILLIGRAM, BID
     Route: 048
  14. GLIPIZIDE [Concomitant]
     Active Substance: GLIPIZIDE
     Dosage: 10 MILLIGRAM, BID
     Route: 048
  15. JARDIANCE [Concomitant]
     Active Substance: EMPAGLIFLOZIN
     Dosage: 25 MILLIGRAM
  16. LANTUS [Concomitant]
     Active Substance: INSULIN GLARGINE
     Dosage: U-100 INSULIN 100 UNITIML
     Route: 058
  17. LOSARTAN [Concomitant]
     Active Substance: LOSARTAN
     Dosage: 100 MILLIGRAM, QD
     Route: 048
  18. MAGNESIUM [Concomitant]
     Active Substance: MAGNESIUM
     Dosage: 400 MILLIGRAM, BID
  19. MECLIZINE [Concomitant]
     Active Substance: MECLIZINE HYDROCHLORIDE
     Dosage: 25 MILLIGRAM, TID
     Route: 048
  20. METFORMIN [Concomitant]
     Active Substance: METFORMIN HYDROCHLORIDE
     Dosage: 1000 MILLIGRAM, BID
     Route: 048
  21. PNEUMOVAX 23 [Concomitant]
     Active Substance: PNEUMOCOCCAL VACCINE, POLYVALENT 23
     Dosage: 25 MCG/0.5 ML INJECTION SYRINGE
  22. PREDNISONE [Concomitant]
     Active Substance: PREDNISONE
     Dosage: 20 MILLIGRAM, 2 TABLET EVERY DAY FOR 5 DAYS
  23. ROSUVASTATIN [Concomitant]
     Active Substance: ROSUVASTATIN
     Dosage: 40 MILLIGRAM, QD
     Route: 048

REACTIONS (2)
  - Wrong technique in product usage process [Unknown]
  - Device difficult to use [Unknown]

NARRATIVE: CASE EVENT DATE: 20220305
